FAERS Safety Report 7952623-0 (Version None)
Quarter: 2011Q4

REPORT INFORMATION
  Report Type: 
  Country: None (occurrence: None)
  Receive Date: 20111201
  Receipt Date: 20111122
  Transmission Date: 20120403
  Serious: Yes (Hospitalization)
  Sender: FDA-Public Use
  Company Number: US-JNJFOC-20110909811

PATIENT
  Sex: Male
  Weight: 107.05 kg

DRUGS (4)
  1. XARELTO [Suspect]
     Indication: THROMBOSIS PROPHYLAXIS
     Route: 048
     Dates: start: 20110901, end: 20110901
  2. LIPITOR [Concomitant]
     Indication: ILL-DEFINED DISORDER
     Dates: end: 20110918
  3. VICODIN [Concomitant]
     Indication: ILL-DEFINED DISORDER
     Dates: end: 20110918
  4. BENICAR HCT [Concomitant]
     Indication: ILL-DEFINED DISORDER
     Dates: end: 20110918

REACTIONS (4)
  - POST PROCEDURAL HAEMORRHAGE [None]
  - ANAEMIA [None]
  - HYPOTENSION [None]
  - SYNCOPE [None]
